FAERS Safety Report 4699612-X (Version None)
Quarter: 2005Q2

REPORT INFORMATION
  Report Type: 
  Country: None (occurrence: None)
  Receive Date: 20050623
  Receipt Date: 20050610
  Transmission Date: 20051028
  Serious: Yes (Other)
  Sender: FDA-Public Use
  Company Number: 2005083302

PATIENT
  Sex: Female

DRUGS (2)
  1. DEPO-PROVERA [Suspect]
     Indication: CONTRACEPTION
     Dosage: (FIRST INJECTION),INTRAMUSCULAR; (LAST INJECTION),INTRAMUSCULAR
     Route: 030
     Dates: start: 20050101, end: 20050101
  2. DEPO-PROVERA [Suspect]
     Indication: CONTRACEPTION
     Dosage: (FIRST INJECTION),INTRAMUSCULAR; (LAST INJECTION),INTRAMUSCULAR
     Route: 030
     Dates: start: 20050301, end: 20050301

REACTIONS (9)
  - ASTHENIA [None]
  - BACK PAIN [None]
  - CONVULSION [None]
  - DEPRESSION [None]
  - DISCOMFORT [None]
  - EMOTIONAL DISORDER [None]
  - FEELING ABNORMAL [None]
  - HEADACHE [None]
  - WEIGHT INCREASED [None]
